FAERS Safety Report 9311337 (Version 1)
Quarter: 2013Q2

REPORT INFORMATION
  Report Type: Spontaneous
  Country: US (occurrence: US)
  Receive Date: 20130528
  Receipt Date: 20130528
  Transmission Date: 20140414
  Serious: Yes (Hospitalization, Other)
  Sender: FDA-Public Use
  Company Number: US-PFIZER INC-2013161086

PATIENT
  Age: 42 Year
  Sex: Male

DRUGS (13)
  1. XELJANZ [Suspect]
     Indication: RHEUMATOID ARTHRITIS
     Dosage: 5 MG, 2X/DAY
     Dates: start: 20130207
  2. FOLEX [Concomitant]
     Dosage: UNK
  3. IBUPROFEN [Concomitant]
     Dosage: UNK
  4. DICLOFENAC [Concomitant]
     Dosage: UNK
  5. TRAMADOL [Concomitant]
     Dosage: UNK
  6. SOMA [Concomitant]
     Dosage: UNK
  7. PREDNISONE [Concomitant]
     Dosage: UNK
  8. RANITIDINE [Concomitant]
     Dosage: UNK
  9. OMEPRAZOLE [Concomitant]
     Dosage: UNK
  10. LOVASTATIN [Concomitant]
     Dosage: UNK
  11. DILTIAZEM [Concomitant]
     Dosage: UNK
  12. AMBIEN [Concomitant]
     Dosage: UNK
  13. ALBUTEROL [Concomitant]
     Dosage: UNK

REACTIONS (2)
  - Sepsis [Unknown]
  - Pneumonia [Unknown]
